FAERS Safety Report 10141461 (Version 3)
Quarter: 2014Q2

REPORT INFORMATION
  Report Type: Report from Study
  Country: US (occurrence: US)
  Receive Date: 20140429
  Receipt Date: 20140619
  Transmission Date: 20141212
  Serious: Yes (Death, Hospitalization, Other)
  Sender: FDA-Public Use
  Company Number: US-ALEXION-A201304882

PATIENT
  Sex: 0

DRUGS (2)
  1. SOLIRIS [Suspect]
     Indication: HAEMOLYTIC URAEMIC SYNDROME
     Dosage: 1200 MG, Q2W
     Route: 042
     Dates: start: 20130115
  2. ANTIBIOTICS [Concomitant]
     Indication: PRODUCT USED FOR UNKNOWN INDICATION
     Dosage: UNK
     Route: 065
     Dates: start: 20130101

REACTIONS (13)
  - Death [Fatal]
  - Renal failure [Unknown]
  - Syncope [Unknown]
  - Quality of life decreased [Unknown]
  - Lymphadenopathy [Unknown]
  - Activities of daily living impaired [Unknown]
  - Pain [Unknown]
  - Oedema [Unknown]
  - Anxiety [Unknown]
  - Pneumonia [Unknown]
  - Vertigo [Unknown]
  - Hypotension [Recovered/Resolved]
  - Dizziness [Recovered/Resolved]
